FAERS Safety Report 9859692 (Version 1)
Quarter: 2014Q1

REPORT INFORMATION
  Report Type: Spontaneous
  Country: FR (occurrence: FR)
  Receive Date: 20140131
  Receipt Date: 20140131
  Transmission Date: 20141002
  Serious: Yes (Life-Threatening, Hospitalization)
  Sender: FDA-Public Use
  Company Number: FR-GLAXOSMITHKLINE-B0962564A

PATIENT
  Age: 33 Year
  Sex: Female

DRUGS (7)
  1. ZELITREX [Suspect]
     Indication: ANTIVIRAL PROPHYLAXIS
     Route: 048
     Dates: start: 20131226
  2. PROGRAF [Suspect]
     Indication: ORGAN TRANSPLANT
     Dosage: 4MG TWICE PER DAY
     Route: 048
     Dates: start: 20131004, end: 20140107
  3. CELLCEPT [Suspect]
     Indication: ORGAN TRANSPLANT
     Route: 048
     Dates: start: 20131004
  4. TRANSFUSION [Concomitant]
     Indication: HAEMORRHAGE
     Dates: start: 2013
  5. DILANTIN [Concomitant]
  6. LEVETIRACETAM [Concomitant]
  7. VALGANCICLOVIR HYDROCHLORIDE [Concomitant]
     Dates: end: 20131225

REACTIONS (2)
  - Posterior reversible encephalopathy syndrome [Not Recovered/Not Resolved]
  - Convulsion [Recovered/Resolved]
